FAERS Safety Report 18552724 (Version 2)
Quarter: 2020Q4

REPORT INFORMATION
  Report Type: Spontaneous
  Country: BG (occurrence: BG)
  Receive Date: 20201127
  Receipt Date: 20201217
  Transmission Date: 20210114
  Serious: Yes (Other)
  Sender: FDA-Public Use
  Company Number: BG-AMGEN-BGRSP2020191714

PATIENT
  Age: 63 Year
  Sex: Female

DRUGS (8)
  1. 5-FU [FLUOROURACIL] [Suspect]
     Active Substance: FLUOROURACIL
     Indication: COLORECTAL CANCER
     Dosage: UNK
     Route: 065
     Dates: start: 20200715
  2. 5-FU [FLUOROURACIL] [Suspect]
     Active Substance: FLUOROURACIL
     Dosage: DOSE REDUCTION BY 25%
     Route: 065
     Dates: start: 2020
  3. VECTIBIX [Suspect]
     Active Substance: PANITUMUMAB
     Dosage: DOSE REDUCTION BY 25%, Q2WK
     Route: 065
     Dates: start: 2020
  4. FOLINIC ACID [Suspect]
     Active Substance: LEUCOVORIN
     Indication: COLORECTAL CANCER
     Dosage: UNK
     Route: 065
     Dates: start: 20200715
  5. OXALIPLATIN. [Suspect]
     Active Substance: OXALIPLATIN
     Dosage: DOSE REDUCTION BY 25%
     Route: 065
     Dates: start: 2020
  6. VECTIBIX [Suspect]
     Active Substance: PANITUMUMAB
     Indication: COLORECTAL CANCER
     Dosage: UNK UNK, Q2WK
     Route: 065
     Dates: start: 20200715
  7. FOLINIC ACID [Suspect]
     Active Substance: LEUCOVORIN
     Dosage: DOSE REDUCTION BY 25%
     Route: 065
     Dates: start: 2020
  8. OXALIPLATIN. [Suspect]
     Active Substance: OXALIPLATIN
     Indication: COLORECTAL CANCER
     Dosage: UNK
     Route: 065
     Dates: start: 20200715

REACTIONS (9)
  - Pain [Unknown]
  - Neutropenia [Recovered/Resolved]
  - Leukopenia [Recovered/Resolved]
  - Dysphagia [Unknown]
  - Mucosal inflammation [Unknown]
  - Rash pruritic [Recovered/Resolved]
  - Skin toxicity [Unknown]
  - Stomatitis [Unknown]
  - Rash papular [Unknown]

NARRATIVE: CASE EVENT DATE: 202008
